FAERS Safety Report 6111044-6 (Version None)
Quarter: 2009Q1

REPORT INFORMATION
  Report Type: 
  Country: None (occurrence: None)
  Receive Date: 20090311
  Receipt Date: 20080326
  Transmission Date: 20090719
  Serious: No
  Sender: FDA-Public Use
  Company Number: US-KINGPHARMUSA00001-K200800366

PATIENT
  Sex: Female
  Weight: 54.875 kg

DRUGS (3)
  1. ALTACE [Suspect]
     Indication: HYPERTENSION
     Dosage: 5 MG, QD, AT NIGHT
     Route: 048
     Dates: start: 20080301
  2. SYNTHROID [Concomitant]
     Indication: HYPOTHYROIDISM
     Dosage: .5 MG, QD
     Dates: start: 19990101
  3. VITAMINS [Concomitant]
     Dosage: UNK, UNK

REACTIONS (2)
  - COUGH [None]
  - FATIGUE [None]
